FAERS Safety Report 9729062 (Version 1)
Quarter: 2013Q4

REPORT INFORMATION
  Report Type: Spontaneous
  Country: US (occurrence: US)
  Receive Date: 20131204
  Receipt Date: 20131204
  Transmission Date: 20140711
  Serious: Yes (Hospitalization)
  Sender: FDA-Public Use
  Company Number: PHHY2013US137185

PATIENT
  Age: 69 Year
  Sex: Female

DRUGS (2)
  1. CARBOPLATIN [Suspect]
     Indication: CHEMOTHERAPY
  2. PACLITAXEL [Suspect]
     Indication: CHEMOTHERAPY

REACTIONS (3)
  - Cholangitis sclerosing [Unknown]
  - Jaundice [Unknown]
  - Biliary dilatation [Unknown]
